FAERS Safety Report 8811295 (Version 2)
Quarter: 2012Q4

REPORT INFORMATION
  Report Type: Spontaneous
  Country: US (occurrence: None)
  Receive Date: 20120924
  Receipt Date: 20121025
  Transmission Date: 20130627
  Serious: Yes (Hospitalization, Other)
  Sender: FDA-Public Use
  Company Number: ACO_31930_2012

PATIENT
  Age: 61 Year
  Sex: Male
  Weight: 84.8 kg

DRUGS (5)
  1. AMPYRA [Suspect]
     Indication: GAIT DISTURBANCE
     Route: 048
  2. EPITOL (CARBAMAZEPINE) [Concomitant]
  3. MINOCYCLINE (MINOCYCLINE) [Concomitant]
  4. VITAMIN D3 (ERGOCALCIFEROL) [Concomitant]
  5. BETASERON (ALBUMIN HUMAN, GLUCOSE, INTERFERON BETA) [Concomitant]

REACTIONS (4)
  - Myocardial infarction [None]
  - Diabetes mellitus [None]
  - Fatigue [None]
  - Fall [None]
